FAERS Safety Report 6355763-5 (Version None)
Quarter: 2009Q3

REPORT INFORMATION
  Report Type: 
  Country: None (occurrence: None)
  Receive Date: 20090911
  Receipt Date: 20090911
  Transmission Date: 20100115
  Serious: Yes (Life-Threatening, Hospitalization, Disabling)
  Sender: FDA-Public Use
  Company Number: None

PATIENT
  Age: 69 Year
  Sex: Male

DRUGS (5)
  1. TRICOR [Suspect]
     Dosage: 145MG TAB DAILY ORAL
     Route: 048
     Dates: start: 20090312, end: 20090701
  2. LISINOPRIL [Concomitant]
  3. GAS X [Concomitant]
  4. ZANTAC 75 [Concomitant]
  5. DULCOLAX [Concomitant]

REACTIONS (3)
  - DYSPNOEA [None]
  - LOSS OF CONSCIOUSNESS [None]
  - PANCREATITIS ACUTE [None]
